FAERS Safety Report 14076175 (Version 2)
Quarter: 2017Q4

REPORT INFORMATION
  Report Type: Spontaneous
  Country: US (occurrence: US)
  Receive Date: 20171010
  Receipt Date: 20171113
  Transmission Date: 20180321
  Serious: Yes (Hospitalization, Disabling, Other)
  Sender: FDA-Public Use
  Company Number: US-009507513-1710USA001686

PATIENT
  Age: 40 Year
  Sex: Male

DRUGS (7)
  1. SURGICEL [Concomitant]
     Active Substance: CELLULOSE, OXIDIZED
  2. HYDROCORTONE [Suspect]
     Active Substance: HYDROCORTISONE
     Indication: MENINGIOMA
  3. CEFEPIME [Suspect]
     Active Substance: CEFEPIME HYDROCHLORIDE
     Indication: FUSOBACTERIUM TEST POSITIVE
  4. VANCOMYCIN [Suspect]
     Active Substance: VANCOMYCIN
     Indication: INFECTION PROPHYLAXIS
  5. HYDROCORTONE [Suspect]
     Active Substance: HYDROCORTISONE
     Indication: ADRENAL INSUFFICIENCY
     Dosage: 20 MG, QD
     Route: 048
  6. VANCOMYCIN [Suspect]
     Active Substance: VANCOMYCIN
     Indication: STAPHYLOCOCCUS TEST POSITIVE
     Dosage: INTRAOPERATIVELY FOLLOWED BY ADDITIONAL 24 HOURS
  7. METRONIDAZOLE. [Suspect]
     Active Substance: METRONIDAZOLE
     Indication: FUSOBACTERIUM TEST POSITIVE
     Dosage: UNK

REACTIONS (2)
  - Meningitis candida [Recovered/Resolved with Sequelae]
  - Product use in unapproved indication [Unknown]
